FAERS Safety Report 4368718-7 (Version None)
Quarter: 2004Q2

REPORT INFORMATION
  Report Type: 
  Country: None (occurrence: None)
  Receive Date: 20040525
  Receipt Date: 20040513
  Transmission Date: 20050107
  Serious: Yes (Hospitalization)
  Sender: FDA-Public Use
  Company Number: 2004213496JP

PATIENT
  Age: 71 Year
  Sex: Female

DRUGS (6)
  1. MEDROXYPROGESTERONE ACETATE [Suspect]
     Indication: BREAST CANCER
     Dosage: 800 MG, QD, ORAL
     Route: 048
     Dates: start: 20040316, end: 20040428
  2. LONGES [Concomitant]
  3. AMARYL [Concomitant]
  4. TS-1 [Concomitant]
  5. ENDOXAN [Concomitant]
  6. MITOMYCIN-C BULK POWDER [Concomitant]

REACTIONS (2)
  - METRORRHAGIA [None]
  - WHITE BLOOD CELL COUNT DECREASED [None]
